FAERS Safety Report 11085741 (Version 2)
Quarter: 2015Q2

REPORT INFORMATION
  Report Type: Spontaneous
  Country: US (occurrence: US)
  Receive Date: 20150503
  Receipt Date: 20150525
  Transmission Date: 20150821
  Serious: No
  Sender: FDA-Public Use
  Company Number: US-JNJFOC-20150318636

PATIENT
  Sex: Female

DRUGS (2)
  1. DACLATASVIR [Suspect]
     Active Substance: DACLATASVIR
     Indication: PRODUCT USED FOR UNKNOWN INDICATION
     Route: 065
  2. ORTHO TRI CYCLEN [Suspect]
     Active Substance: ETHINYL ESTRADIOL\NORGESTIMATE
     Indication: PRODUCT USED FOR UNKNOWN INDICATION
     Route: 048

REACTIONS (7)
  - Headache [Unknown]
  - Abdominal pain [Unknown]
  - Back pain [Unknown]
  - Metrorrhagia [Unknown]
  - Acne [Unknown]
  - Constipation [Unknown]
  - Nausea [Unknown]
